FAERS Safety Report 4269875-3 (Version None)
Quarter: 2004Q1

REPORT INFORMATION
  Report Type: 
  Country: None (occurrence: None)
  Receive Date: 20040114
  Receipt Date: 20030120
  Transmission Date: 20041129
  Serious: Yes (Hospitalization)
  Sender: FDA-Public Use
  Company Number: 200310154DE

PATIENT
  Sex: Female

DRUGS (9)
  1. TAXOTERE [Suspect]
     Indication: BREAST CANCER
     Route: 042
     Dates: start: 20021230, end: 20021230
  2. DOXORUBICIN HCL [Suspect]
     Indication: BREAST CANCER
     Dates: start: 20021230, end: 20021230
  3. CYCLOPHOSPHAMIDE [Suspect]
     Indication: BREAST CANCER
     Dates: start: 20021230, end: 20021230
  4. FORTECORTIN [Concomitant]
     Dates: end: 20021230
  5. UROMITEXAN [Concomitant]
     Dates: end: 20021230
  6. KEVATRIL [Concomitant]
     Dates: end: 20021230
  7. SOSTRIL [Concomitant]
     Dates: end: 20021230
  8. TAVEGIL [Concomitant]
     Dates: end: 20021230
  9. CEBION [Concomitant]
     Dates: end: 20021230

REACTIONS (3)
  - ASTHENIA [None]
  - CARDIOVASCULAR DISORDER [None]
  - MALAISE [None]
